FAERS Safety Report 5904617-4 (Version None)
Quarter: 2008Q3

REPORT INFORMATION
  Report Type: 
  Country: None (occurrence: None)
  Receive Date: 20080930
  Receipt Date: 20080930
  Transmission Date: 20090109
  Serious: Yes (Hospitalization)
  Sender: FDA-Public Use
  Company Number: None

PATIENT
  Age: 68 Year
  Sex: Male
  Weight: 95.2554 kg

DRUGS (1)
  1. CETUXIMAB [Suspect]

REACTIONS (6)
  - CONDITION AGGRAVATED [None]
  - DISEASE PROGRESSION [None]
  - DRUG TOXICITY [None]
  - HAEMATURIA [None]
  - HEPATIC CANCER METASTATIC [None]
  - RENAL FAILURE ACUTE [None]
